FAERS Safety Report 10171302 (Version 15)
Quarter: 2024Q1

REPORT INFORMATION
  Report Type: Spontaneous
  Country: US (occurrence: US)
  Receive Date: 20140514
  Receipt Date: 20240112
  Transmission Date: 20240410
  Serious: Yes (Other)
  Sender: FDA-Public Use
  Company Number: US-PFIZER INC-2014131046

PATIENT
  Age: 63 Year
  Sex: Female

DRUGS (2)
  1. XELJANZ [Suspect]
     Active Substance: TOFACITINIB CITRATE
     Dosage: 5 MG, 2X/DAY
  2. XELJANZ [Suspect]
     Active Substance: TOFACITINIB CITRATE
     Dosage: 5 MG, 1X/DAY

REACTIONS (15)
  - Hip arthroplasty [Unknown]
  - Arthropathy [Unknown]
  - Nasopharyngitis [Unknown]
  - Influenza [Unknown]
  - Sinusitis [Unknown]
  - Illness [Unknown]
  - Memory impairment [Unknown]
  - Immune system disorder [Unknown]
  - Infection [Unknown]
  - COVID-19 [Unknown]
  - Bronchitis [Unknown]
  - Ear infection [Unknown]
  - Dysphonia [Unknown]
  - Pain [Unknown]
  - Product dose omission in error [Unknown]
